FAERS Safety Report 9816363 (Version 1)
Quarter: 2014Q1

REPORT INFORMATION
  Report Type: Spontaneous
  Country: US (occurrence: US)
  Receive Date: 20140114
  Receipt Date: 20140114
  Transmission Date: 20141002
  Serious: Yes (Other)
  Sender: FDA-Public Use
  Company Number: US-B.I. PHARMACEUTICALS,INC./RIDGEFIELD-2014-BI-01422BP

PATIENT
  Age: 65 Year
  Sex: Female
  Weight: 76 kg

DRUGS (8)
  1. PRADAXA [Suspect]
     Indication: ATRIAL FIBRILLATION
     Dosage: 300 MG
     Route: 048
     Dates: start: 201109
  2. VITAMIN D 3 [Concomitant]
     Dosage: 500 NR
     Route: 048
  3. MAGNESIUM [Concomitant]
     Dosage: 4 ANZ
     Route: 048
  4. METOPROLOL SUCCINATE ER [Concomitant]
     Indication: HYPERTENSION
     Dosage: 25 MG
     Route: 048
  5. METOPROLOL SUCCINATE ER [Concomitant]
     Indication: BLOOD PRESSURE INCREASED
     Dosage: STRENGTH: 25 MG;
     Route: 048
  6. ELEOTIN [Concomitant]
     Indication: BLOOD GLUCOSE INCREASED
     Dosage: 3 ANZ
     Route: 048
  7. ELEOTIN [Concomitant]
     Indication: WEIGHT DECREASED
  8. ELEOTIN [Concomitant]
     Indication: CARDIOVASCULAR DISORDER

REACTIONS (3)
  - Transient ischaemic attack [Not Recovered/Not Resolved]
  - Gait disturbance [Not Recovered/Not Resolved]
  - Headache [Not Recovered/Not Resolved]
